FAERS Safety Report 8590478-4 (Version None)
Quarter: 2012Q3

REPORT INFORMATION
  Report Type: 
  Country: None (occurrence: None)
  Receive Date: 20120813
  Receipt Date: 20120803
  Transmission Date: 20120928
  Serious: Yes (Hospitalization, Other)
  Sender: FDA-Public Use
  Company Number: JP-PFIZER INC-2012193501

PATIENT
  Age: 72 Year
  Sex: Male
  Weight: 50 kg

DRUGS (12)
  1. CALCIUM LEVOFOLINATE [Concomitant]
     Dosage: 300 MG, UNK
     Dates: start: 20101004, end: 20101004
  2. AVASTIN [Concomitant]
     Indication: COLORECTAL CANCER
     Dosage: UNK
     Dates: start: 20101004, end: 20101004
  3. CALCIUM LEVOFOLINATE [Concomitant]
     Dosage: 300 MG, UNK
     Dates: start: 20100818, end: 20100818
  4. IRINOTECAN HYDROCHLORIDE [Suspect]
     Indication: COLORECTAL CANCER
     Dosage: 200 MG, 1X/DAY
     Route: 041
     Dates: start: 20100804, end: 20100804
  5. FLUOROURACIL [Suspect]
     Indication: COLORECTAL CANCER
     Dosage: 3650 MG, D1-2
     Route: 041
     Dates: start: 20100804, end: 20100804
  6. FLUOROURACIL [Suspect]
     Dosage: 3650 MG, D1-2
     Route: 041
     Dates: start: 20101004, end: 20101004
  7. DECADRON PHOSPHATE [Concomitant]
     Dosage: UNK
     Dates: start: 20101006
  8. FLUOROURACIL [Suspect]
     Dosage: 3650 MG, D1-2
     Route: 041
     Dates: start: 20100818, end: 20100818
  9. IRINOTECAN HYDROCHLORIDE [Suspect]
     Dosage: 200 MG, 1X/DAY
     Route: 041
     Dates: start: 20100818, end: 20100818
  10. DEXAMETHASONE SODIUM PHOSPHATE [Concomitant]
     Dosage: UNK
     Dates: start: 20101006, end: 20101018
  11. IRINOTECAN HYDROCHLORIDE [Suspect]
     Dosage: 200 MG, 1X/DAY
     Route: 041
     Dates: start: 20101004, end: 20101004
  12. CALCIUM LEVOFOLINATE [Concomitant]
     Indication: COLORECTAL CANCER
     Dosage: 300 MG, UNK
     Dates: start: 20100804, end: 20100804

REACTIONS (2)
  - HYPOPHAGIA [None]
  - MELAENA [None]
